FAERS Safety Report 10239547 (Version 1)
Quarter: 2014Q2

REPORT INFORMATION
  Report Type: Spontaneous
  Country: US (occurrence: US)
  Receive Date: 20140616
  Receipt Date: 20140616
  Transmission Date: 20141212
  Serious: Yes (Other)
  Sender: FDA-Public Use
  Company Number: US-ALLERGAN-1413114US

PATIENT
  Sex: Female

DRUGS (3)
  1. LUMIGAN 0.01% [Suspect]
     Indication: PRODUCT USED FOR UNKNOWN INDICATION
     Dosage: 1 GTT, QHS
     Route: 047
     Dates: start: 200208
  2. COMBIGAN[R] [Suspect]
     Indication: PRODUCT USED FOR UNKNOWN INDICATION
     Dosage: 1 GTT, BID
     Route: 047
     Dates: start: 201208
  3. AZOPT [Concomitant]

REACTIONS (8)
  - Blindness transient [Unknown]
  - Eye inflammation [Not Recovered/Not Resolved]
  - Lens disorder [Unknown]
  - Acne [Unknown]
  - Tooth discolouration [Not Recovered/Not Resolved]
  - Device failure [Not Recovered/Not Resolved]
  - Skin hyperpigmentation [Unknown]
  - Growth of eyelashes [Not Recovered/Not Resolved]
